FAERS Safety Report 4911878-7 (Version None)
Quarter: 2006Q1

REPORT INFORMATION
  Report Type: 
  Country: None (occurrence: None)
  Receive Date: 20060213
  Receipt Date: 20060213
  Transmission Date: 20060701
  Serious: Yes (Death)
  Sender: FDA-Public Use
  Company Number: None

PATIENT
  Age: 71 Year
  Sex: Male
  Weight: 56.5 kg

DRUGS (2)
  1. BEVACIZUMAB [Suspect]
     Indication: MESOTHELIOMA
     Dosage: 15MG/KG = 850MG    Q21DAYS  IV
     Route: 042
     Dates: start: 20051214, end: 20060104
  2. TARCEVA [Suspect]
     Indication: MESOTHELIOMA
     Dosage: 150MG  QD  PO
     Route: 048
     Dates: start: 20051214, end: 20060114

REACTIONS (1)
  - DISEASE PROGRESSION [None]
